FAERS Safety Report 23707208 (Version 1)
Quarter: 2024Q2

REPORT INFORMATION
  Report Type: Other
  Country: US (occurrence: US)
  Receive Date: 20240404
  Receipt Date: 20240404
  Transmission Date: 20240716
  Serious: Yes (Hospitalization, Disabling, Other)
  Sender: FDA-Public Use
  Company Number: US-DEXPHARM-2024-0811

PATIENT
  Age: 75 Year
  Sex: Male

DRUGS (5)
  1. DEXAMETHASONE [Interacting]
     Active Substance: DEXAMETHASONE
     Indication: Bacterial infection
     Dosage: NA
  2. TOCILIZUMAB [Interacting]
     Active Substance: TOCILIZUMAB
     Indication: Bacterial infection
     Dosage: NA
  3. REMDESIVIR [Suspect]
     Active Substance: REMDESIVIR
     Indication: Bacterial infection
     Dosage: NA
  4. CEFTRIAXONE [Suspect]
     Active Substance: CEFTRIAXONE\CEFTRIAXONE SODIUM
     Indication: Bacterial infection
     Dosage: NA
  5. AZITHROMYCIN [Suspect]
     Active Substance: AZITHROMYCIN
     Indication: Bacterial infection
     Dosage: NA

REACTIONS (2)
  - Pulmonary cavitation [Recovering/Resolving]
  - Drug interaction [Unknown]
